FAERS Safety Report 4364304-3 (Version None)
Quarter: 2004Q2

REPORT INFORMATION
  Report Type: 
  Country: None (occurrence: None)
  Receive Date: 20040519
  Receipt Date: 20040506
  Transmission Date: 20050107
  Serious: Yes (Death)
  Sender: FDA-Public Use
  Company Number: 2004-BP-03517RO

PATIENT
  Age: 46 Year
  Sex: Female
  Weight: 62.6 kg

DRUGS (6)
  1. ALPRAZOLAM [Suspect]
  2. PROPOXYPHENE HCL [Suspect]
  3. DIPHENHYDRAMINE HCL [Concomitant]
  4. CARISOPRODOL [Concomitant]
  5. MEPROBAMATE [Concomitant]
  6. METHADONE HCL [Suspect]

REACTIONS (11)
  - BRAIN OEDEMA [None]
  - DRUG SCREEN POSITIVE [None]
  - DRUG TOXICITY [None]
  - GALLBLADDER DISORDER [None]
  - HAEMORRHAGE [None]
  - HYPERADRENOCORTICISM [None]
  - MULTIPLE DRUG OVERDOSE [None]
  - PNEUMOCONIOSIS [None]
  - PULMONARY CONGESTION [None]
  - PULMONARY OEDEMA [None]
  - UTERINE POLYP [None]
